FAERS Safety Report 9350139 (Version 1)
Quarter: 2013Q2

REPORT INFORMATION
  Report Type: Spontaneous
  Country: JP (occurrence: JP)
  Receive Date: 20130617
  Receipt Date: 20130617
  Transmission Date: 20140414
  Serious: Yes (Other)
  Sender: FDA-Public Use
  Company Number: JP-009507513-1306JPN003736

PATIENT
  Sex: Female

DRUGS (3)
  1. PEGINTRON [Suspect]
     Dosage: DAILY DOSE UNKNOWN
     Route: 058
  2. REBETOL [Suspect]
     Dosage: DAILY DOSE UNKNOWN
     Route: 048
  3. MERCAZOLE [Suspect]
     Dosage: DAILY DOSE UNKNOWN
     Route: 048

REACTIONS (2)
  - Agranulocytosis [Unknown]
  - Basedow^s disease [Unknown]
